FAERS Safety Report 4349328-4 (Version None)
Quarter: 2004Q2

REPORT INFORMATION
  Report Type: 
  Country: None (occurrence: None)
  Receive Date: 20040426
  Receipt Date: 20040414
  Transmission Date: 20050107
  Serious: Yes (Other)
  Sender: FDA-Public Use
  Company Number: US-JNJFOC-20040102950

PATIENT
  Age: 46 Year
  Sex: Female
  Weight: 68.0396 kg

DRUGS (9)
  1. REMICADE [Suspect]
     Indication: CROHN'S DISEASE
     Dosage: SEE IMAGE
     Route: 042
     Dates: start: 20000422
  2. REMICADE [Suspect]
     Indication: CROHN'S DISEASE
     Dosage: SEE IMAGE
     Route: 042
     Dates: start: 20010101
  3. REMICADE [Suspect]
     Indication: CROHN'S DISEASE
     Dosage: SEE IMAGE
     Route: 042
     Dates: start: 20031124
  4. REMICADE [Suspect]
     Indication: CROHN'S DISEASE
     Dosage: SEE IMAGE
     Route: 042
     Dates: start: 20040129
  5. REMICADE [Suspect]
  6. DARVOCET [Concomitant]
  7. IRON (IRON) [Concomitant]
  8. MULTIVITAMIN (MULTIVITAMINS) [Concomitant]
  9. IMURAN [Concomitant]

REACTIONS (4)
  - CROHN'S DISEASE [None]
  - HAEMOGLOBIN DECREASED [None]
  - LUPUS-LIKE SYNDROME [None]
  - WHITE BLOOD CELL COUNT DECREASED [None]
